FAERS Safety Report 12602811 (Version 1)
Quarter: 2016Q3

REPORT INFORMATION
  Report Type: Spontaneous
  Country: US (occurrence: US)
  Receive Date: 20160728
  Receipt Date: 20160728
  Transmission Date: 20161109
  Serious: No
  Sender: FDA-Public Use
  Company Number: US-MYLANLABS-2015M1032255

PATIENT
  Sex: Female

DRUGS (1)
  1. DOXYCYCLINE HYCLATE CAPSULES, USP [Suspect]
     Active Substance: DOXYCYCLINE HYCLATE
     Dosage: 100 MG, UNK

REACTIONS (1)
  - Hypersensitivity [Not Recovered/Not Resolved]
